FAERS Safety Report 10020743 (Version 2)
Quarter: 2014Q2

REPORT INFORMATION
  Report Type: Spontaneous
  Country: DE (occurrence: DE)
  Receive Date: 20140319
  Receipt Date: 20140402
  Transmission Date: 20141212
  Serious: Yes (Other)
  Sender: FDA-Public Use
  Company Number: DE-AMGEN-DEUSP2014017451

PATIENT
  Age: 85 Year
  Sex: Female

DRUGS (6)
  1. MIMPARA [Suspect]
     Indication: PRIMARY HYPOTHYROIDISM
     Dosage: 60 MG, BID
     Route: 048
     Dates: start: 20130915
  2. MIMPARA [Suspect]
     Indication: HYPERCALCAEMIA
  3. LASIX                              /00032601/ [Concomitant]
     Route: 065
  4. SPIRIVA [Concomitant]
     Route: 065
  5. RAMIPRIL [Concomitant]
     Dosage: 5 MG, UNK
     Route: 065
  6. FOSTER                             /00500401/ [Concomitant]

REACTIONS (5)
  - Cholelithiasis [Not Recovered/Not Resolved]
  - Creatinine renal clearance abnormal [Unknown]
  - Alanine aminotransferase increased [Not Recovered/Not Resolved]
  - Blood parathyroid hormone abnormal [Not Recovered/Not Resolved]
  - Blood creatinine increased [Not Recovered/Not Resolved]
